FAERS Safety Report 7990836-2 (Version None)
Quarter: 2011Q4

REPORT INFORMATION
  Report Type: 
  Country: None (occurrence: None)
  Receive Date: 20111219
  Receipt Date: 20111207
  Transmission Date: 20120403
  Serious: Yes (Other)
  Sender: FDA-Public Use
  Company Number: BR-ROCHE-1013482

PATIENT
  Sex: Female

DRUGS (11)
  1. GLYBURIDE [Concomitant]
  2. METFORMIN HCL [Concomitant]
  3. ALENIA (BRAZIL) [Concomitant]
  4. XOLAIR [Suspect]
     Indication: ASTHMA
     Dates: start: 20110701
  5. ENALAPRIL MALEATE [Concomitant]
  6. INSULIN [Concomitant]
  7. ALBUTEROL SULFATE AUTOHALER [Concomitant]
  8. BUDESONIDE [Concomitant]
  9. PREDNISONE TAB [Concomitant]
  10. XOLAIR [Suspect]
     Dates: start: 20111027
  11. CHLORTHALIDONE [Concomitant]

REACTIONS (2)
  - INFLUENZA [None]
  - ASTHMA [None]
